FAERS Safety Report 8382137-8 (Version None)
Quarter: 2012Q2

REPORT INFORMATION
  Report Type: 
  Country: None (occurrence: None)
  Receive Date: 20120524
  Receipt Date: 20120523
  Transmission Date: 20120825
  Serious: Yes (Other)
  Sender: FDA-Public Use
  Company Number: US-PFIZER INC-2012124891

PATIENT
  Sex: Male
  Weight: 97.959 kg

DRUGS (6)
  1. KLONOPIN [Concomitant]
     Indication: ANXIETY
  2. KLONOPIN [Concomitant]
     Indication: NERVOUS SYSTEM DISORDER
     Dosage: 0.5 MG, AS NEEDED
  3. ZOLOFT [Suspect]
     Indication: DEPRESSION
     Dosage: 50 MG, DAILY
     Dates: start: 20110101
  4. LOPID [Concomitant]
     Indication: BLOOD CHOLESTEROL ABNORMAL
     Dosage: 600 MG, DAILY
  5. VERAPAMIL HCL [Suspect]
     Dosage: UNK
     Dates: start: 20120517
  6. METFORMIN [Concomitant]
     Indication: TYPE 2 DIABETES MELLITUS
     Dosage: FOUR TABLETS OF 500 MG, DAILY
     Route: 048

REACTIONS (3)
  - BLOOD GLUCOSE INCREASED [None]
  - DRUG INEFFECTIVE [None]
  - LABYRINTHINE FISTULA [None]
